FAERS Safety Report 8169466-8 (Version None)
Quarter: 2012Q1

REPORT INFORMATION
  Report Type: 
  Country: None (occurrence: None)
  Receive Date: 20120228
  Receipt Date: 20120220
  Transmission Date: 20120608
  Serious: Yes (Death)
  Sender: FDA-Public Use
  Company Number: LB-CELGENEUS-093-21880-11113457

PATIENT
  Age: 64 Year
  Sex: Male

DRUGS (3)
  1. LASIX [Concomitant]
     Route: 065
     Dates: start: 20110701
  2. PREDNISONE [Concomitant]
     Route: 065
     Dates: start: 20110701
  3. REVLIMID [Suspect]
     Indication: MULTIPLE MYELOMA
     Dosage: 25 MILLIGRAM
     Route: 048
     Dates: start: 20110620, end: 20110817

REACTIONS (1)
  - MULTIPLE MYELOMA [None]
